FAERS Safety Report 6747778-X (Version None)
Quarter: 2010Q2

REPORT INFORMATION
  Report Type: 
  Country: None (occurrence: None)
  Receive Date: 20100528
  Receipt Date: 20100526
  Transmission Date: 20101027
  Serious: Yes (Other)
  Sender: FDA-Public Use
  Company Number: US-ROXANE LABORATORIES, INC.-2010-RO-00636RO

PATIENT
  Age: 51 Year
  Sex: Male

DRUGS (11)
  1. ROPINIROLE [Suspect]
     Indication: PARKINSON'S DISEASE
     Dosage: 2 MG
     Dates: start: 20060401
  2. ROPINIROLE [Suspect]
     Dosage: 3 MG
  3. HYDROMORPHONE HCL [Suspect]
     Indication: BACK PAIN
  4. LORAZEPAM [Suspect]
     Indication: DEPRESSION
     Dates: start: 20030101
  5. LORAZEPAM [Suspect]
     Indication: ANXIETY
  6. LEVODOPA [Suspect]
     Indication: PARKINSON'S DISEASE
     Dosage: 500 MG
  7. ENTACAPONE [Suspect]
     Indication: PARKINSON'S DISEASE
     Dosage: 1000 MG
  8. METAXALONE [Suspect]
     Indication: BACK PAIN
  9. FENTANYL-75 [Suspect]
     Indication: BACK PAIN
     Route: 062
  10. PAROXETINE HCL [Suspect]
     Indication: DEPRESSION
     Dates: start: 20030101
  11. PAROXETINE HCL [Suspect]
     Indication: ANXIETY

REACTIONS (2)
  - DEMENTIA [None]
  - DERMATILLOMANIA [None]
